FAERS Safety Report 19625609 (Version 1)
Quarter: 2021Q3

REPORT INFORMATION
  Report Type: Spontaneous
  Country: US (occurrence: US)
  Receive Date: 20210728
  Receipt Date: 20210728
  Transmission Date: 20211014
  Serious: Yes (Other)
  Sender: FDA-Public Use
  Company Number: None

PATIENT
  Age: 61 Year
  Sex: Female
  Weight: 56.7 kg

DRUGS (43)
  1. CYCLOBENZAPRINE. [Concomitant]
     Active Substance: CYCLOBENZAPRINE
  2. DIHYDROQUERCETIN [Concomitant]
     Active Substance: TAXIFOLIN, (+/-)-
  3. L?LYSINE [Concomitant]
     Active Substance: LYSINE
  4. NADH [Concomitant]
     Active Substance: NADH
  5. RODIOLA [Concomitant]
  6. ACYCLOVIR OINTMENT [Concomitant]
     Active Substance: ACYCLOVIR
  7. MUCINEX [Concomitant]
     Active Substance: GUAIFENESIN
  8. OURA RING TRACKING DEVICES [Concomitant]
  9. ALPHA GPC [Concomitant]
  10. GABA [Concomitant]
     Active Substance: HOMEOPATHICS
  11. IMMUNOCAL [Concomitant]
  12. ST. JOHN^S WORT [Concomitant]
     Active Substance: ST. JOHN^S WORT
  13. VIT K?2 MK?7 [Concomitant]
  14. ZINC. [Concomitant]
     Active Substance: ZINC
  15. DICLOFENACZOVIRAX DREAM [Concomitant]
  16. LORATASINE [Concomitant]
  17. AZELAST NASAL SPRAY [Concomitant]
  18. CAL?MAG [Concomitant]
  19. FLAXSEED [Concomitant]
     Active Substance: FLAX SEED
  20. NIACINAMIDE [Concomitant]
     Active Substance: NIACINAMIDE
  21. PROBIOTICS [Concomitant]
     Active Substance: PROBIOTICS NOS
  22. VITAMIN C [Concomitant]
     Active Substance: ASCORBIC ACID
  23. GLUTATHIONE [Concomitant]
     Active Substance: GLUTATHIONE
  24. NAC [Concomitant]
  25. PANTOTHENIC ACID [Concomitant]
     Active Substance: PANTOTHENIC ACID
  26. QUERCETIN [Concomitant]
     Active Substance: QUERCETIN
  27. FAMVIR [Concomitant]
     Active Substance: FAMCICLOVIR
  28. L?CARNITINE [Concomitant]
     Active Substance: LEVOCARNITINE
  29. MUCUNA PRURIENS [Concomitant]
     Active Substance: HERBALS
  30. BENADRYL [Concomitant]
     Active Substance: DIPHENHYDRAMINE HYDROCHLORIDE
  31. ZYRTEC [Concomitant]
     Active Substance: CETIRIZINE HYDROCHLORIDE
  32. APPLE WATCH [Concomitant]
  33. COENZYME Q10 [Concomitant]
     Active Substance: DIETARY SUPPLEMENT\UBIDECARENONE
  34. GKINGO BILOBA [Concomitant]
  35. MAGNESIUM GLYCINATE [Concomitant]
     Active Substance: MAGNESIUM GLYCINATE
  36. MELATONIN [Concomitant]
     Active Substance: MELATONIN
  37. PANTETHINE [Concomitant]
     Active Substance: PANTETHINE
  38. PROBOOST [Concomitant]
  39. VALERIAN [Concomitant]
     Active Substance: VALERIAN
  40. VITAMIN D3 [Concomitant]
     Active Substance: CHOLECALCIFEROL
  41. ACYCLOVIR TABLETS, USP 800MG [Suspect]
     Active Substance: ACYCLOVIR
     Indication: HERPES ZOSTER
     Dosage: ?QUANTITY:100 DF DOSAGE FORM;?OTHER FREQUENCY:1 TAB 5XDAY;?
     Route: 048
  42. CIMETIDINE [Concomitant]
     Active Substance: CIMETIDINE
  43. COMPRESSION CALF SLEEVES [Concomitant]

REACTIONS (7)
  - Herpes zoster [None]
  - Condition aggravated [None]
  - Product substitution issue [None]
  - Product quality issue [None]
  - Therapeutic response decreased [None]
  - Manufacturing materials issue [None]
  - Drug ineffective [None]

NARRATIVE: CASE EVENT DATE: 20210620
